FAERS Safety Report 4624888-4 (Version None)
Quarter: 2005Q2

REPORT INFORMATION
  Report Type: 
  Country: None (occurrence: None)
  Receive Date: 20050325
  Receipt Date: 20050110
  Transmission Date: 20051028
  Serious: No
  Sender: FDA-Public Use
  Company Number: USA050187827

PATIENT
  Age: 65 Year
  Sex: Female
  Weight: 57 kg

DRUGS (1)
  1. FORTEO [Suspect]
     Indication: OSTEOPOROSIS
     Dates: start: 20050107

REACTIONS (5)
  - BODY HEIGHT DECREASED [None]
  - DYSPEPSIA [None]
  - GRIP STRENGTH DECREASED [None]
  - INJECTION SITE ERYTHEMA [None]
  - NAUSEA [None]
